FAERS Safety Report 6060523-9 (Version None)
Quarter: 2009Q1

REPORT INFORMATION
  Report Type: 
  Country: None (occurrence: None)
  Receive Date: 20090202
  Receipt Date: 20090121
  Transmission Date: 20090719
  Serious: Yes (Hospitalization, Other)
  Sender: FDA-Public Use
  Company Number: US-BAYER-200839240NA

PATIENT
  Age: 32 Year
  Sex: Female
  Weight: 148 kg

DRUGS (13)
  1. BETASERON [Suspect]
     Indication: RELAPSING-REMITTING MULTIPLE SCLEROSIS
     Dosage: TOTAL DAILY DOSE: 8 MIU
     Route: 058
     Dates: start: 20080613, end: 20080820
  2. BETASERON [Suspect]
     Dosage: TOTAL DAILY DOSE: 4 MIU
     Route: 058
     Dates: start: 20081118, end: 20081123
  3. BENICAR [Concomitant]
     Dosage: TOTAL DAILY DOSE: 10 MG  UNIT DOSE: 10 MG
     Route: 048
  4. CALCIUM WITH VITAMIN D [Concomitant]
     Dosage: TOTAL DAILY DOSE: 1 DF  UNIT DOSE: 1 DF
     Route: 048
  5. LASIX [Concomitant]
     Indication: CARDIAC FAILURE CONGESTIVE
     Dosage: TOTAL DAILY DOSE: 40 MG  UNIT DOSE: 40 MG
     Dates: start: 20050101
  6. LEVOXYL [Concomitant]
     Indication: HYPERTHYROIDISM
     Dosage: TOTAL DAILY DOSE: 100 ?G  UNIT DOSE: 100 ?G
     Route: 048
     Dates: start: 20080101
  7. LEXAPRO [Concomitant]
     Indication: DEPRESSION
     Dosage: TOTAL DAILY DOSE: 20 MG  UNIT DOSE: 20 MG
     Route: 048
     Dates: start: 20070101
  8. MULTI-VITAMINS [Concomitant]
     Dosage: TOTAL DAILY DOSE: 1 DF  UNIT DOSE: 1 DF
  9. NEVANAC [Concomitant]
     Route: 047
  10. POTASSIUM CHLORIDE [Concomitant]
     Dosage: TOTAL DAILY DOSE: 20 MEQ  UNIT DOSE: 20 MEQ
     Route: 048
     Dates: start: 20050101
  11. TRAMADOL [Concomitant]
  12. TYLENOL [Concomitant]
  13. VICODIN [Concomitant]
     Route: 048

REACTIONS (11)
  - ABDOMINAL PAIN UPPER [None]
  - BACK PAIN [None]
  - CHEST PAIN [None]
  - CHOLELITHIASIS [None]
  - HAEMORRHAGE [None]
  - HEPATIC ENZYME INCREASED [None]
  - HEPATITIS [None]
  - NAUSEA [None]
  - PANCREATITIS [None]
  - RENAL FUNCTION TEST ABNORMAL [None]
  - VOMITING [None]
